FAERS Safety Report 22215852 (Version 1)
Quarter: 2023Q2

REPORT INFORMATION
  Report Type: Spontaneous
  Country: US (occurrence: US)
  Receive Date: 20230417
  Receipt Date: 20230417
  Transmission Date: 20230722
  Serious: No
  Sender: FDA-Public Use
  Company Number: US-drreddys-SPO/USA/23/0162544

PATIENT
  Age: 27 Year

DRUGS (1)
  1. ZENATANE [Suspect]
     Active Substance: ISOTRETINOIN
     Indication: Acne
     Dates: start: 20230201

REACTIONS (2)
  - Rash [Unknown]
  - Swelling face [Unknown]

NARRATIVE: CASE EVENT DATE: 20230306
